FAERS Safety Report 4971391-8 (Version None)
Quarter: 2006Q2

REPORT INFORMATION
  Report Type: 
  Country: None (occurrence: None)
  Receive Date: 20060413
  Receipt Date: 20060320
  Transmission Date: 20061013
  Serious: Yes (Other)
  Sender: FDA-Public Use
  Company Number: PHEH2006US03685

PATIENT
  Age: 64 Year
  Sex: Female

DRUGS (7)
  1. ZELNORM [Suspect]
     Indication: IRRITABLE BOWEL SYNDROME
     Dosage: 2 MG, BID
     Route: 048
     Dates: start: 20030101
  2. ZELNORM [Suspect]
     Dosage: 6 MG, BID
     Route: 048
     Dates: start: 20050601
  3. ZELNORM [Suspect]
     Dosage: 2 MG, BID
     Route: 048
     Dates: start: 20060316
  4. LITHIUM [Concomitant]
  5. PAXIL [Concomitant]
  6. ASPIRIN [Concomitant]
  7. TYLENOL (CAPLET) [Concomitant]

REACTIONS (9)
  - ABDOMINAL PAIN UPPER [None]
  - ANAEMIA [None]
  - COLONOSCOPY [None]
  - DIARRHOEA [None]
  - HAEMORRHOID OPERATION [None]
  - HAEMORRHOIDAL HAEMORRHAGE [None]
  - HAEMORRHOIDS [None]
  - MEMORY IMPAIRMENT [None]
  - RECTAL HAEMORRHAGE [None]
